FAERS Safety Report 9099616 (Version 2)
Quarter: 2013Q2

REPORT INFORMATION
  Report Type: Report from Study
  Country: JP (occurrence: JP)
  Receive Date: 20130214
  Receipt Date: 20130430
  Transmission Date: 20140414
  Serious: Yes (Hospitalization)
  Sender: FDA-Public Use
  Company Number: PHHY2011JP10950

PATIENT
  Age: 78 Year
  Sex: Male
  Weight: 59 kg

DRUGS (6)
  1. ICL670A [Suspect]
     Indication: APLASTIC ANAEMIA
     Dosage: 1250 MG, DAILY
     Route: 048
     Dates: start: 20090515, end: 20090614
  2. ICL670A [Suspect]
     Dosage: 625 MG, DAILY
     Route: 048
     Dates: start: 20090930, end: 20110107
  3. ICL670A [Suspect]
     Dosage: 625 MG, DAILY
     Route: 048
     Dates: start: 20110520, end: 20110825
  4. ICL670A [Suspect]
     Dosage: 1000 MG, DAILY
     Route: 048
     Dates: start: 20120803, end: 20121001
  5. NEORAL [Concomitant]
     Indication: APLASTIC ANAEMIA
     Dosage: 50 MG, UNK
     Route: 048
     Dates: start: 20090515, end: 20091110
  6. EXELON [Concomitant]
     Dosage: UNK UKN, UNK
     Dates: end: 20110107

REACTIONS (4)
  - Aplastic anaemia [Recovering/Resolving]
  - Disease progression [Recovering/Resolving]
  - Colitis [Recovered/Resolved]
  - Blood creatinine increased [Recovered/Resolved]
